FAERS Safety Report 7000787-8 (Version None)
Quarter: 2010Q3

REPORT INFORMATION
  Report Type: 
  Country: None (occurrence: None)
  Receive Date: 20100920
  Receipt Date: 20100527
  Transmission Date: 20110219
  Serious: Yes (Hospitalization)
  Sender: FDA-Public Use
  Company Number: US-ASTRAZENECA-2009UW16212

PATIENT
  Age: 15175 Day
  Sex: Female
  Weight: 105.7 kg

DRUGS (15)
  1. SEROQUEL [Suspect]
     Indication: SLEEP DISORDER
     Dosage: 200 MG -500 MG
     Route: 048
     Dates: start: 20020101, end: 20070201
  2. SEROQUEL [Suspect]
     Dosage: 200  TO 600 MG
     Route: 048
     Dates: start: 20050310
  3. ABILIFY [Concomitant]
  4. NEURONTIN [Concomitant]
     Route: 048
  5. NEURONTIN [Concomitant]
     Dates: start: 20051205
  6. WELLBUTRIN [Concomitant]
     Dates: start: 20051205
  7. PAXIL [Concomitant]
     Dosage: 20MG TO 40 MG DAILY
     Route: 048
     Dates: start: 20050310
  8. LUNESTA [Concomitant]
  9. TRAZODONE HCL [Concomitant]
  10. ZOCOR [Concomitant]
     Route: 048
     Dates: start: 20070221
  11. ASPIRIN [Concomitant]
     Route: 048
     Dates: start: 20070221
  12. LOPRESSOR [Concomitant]
     Route: 048
     Dates: start: 20070221
  13. PROTONIX [Concomitant]
     Route: 048
     Dates: start: 20070221
  14. GEMFIBROZIL [Concomitant]
     Route: 048
     Dates: start: 20070221
  15. AVANDIA [Concomitant]
     Route: 048
     Dates: start: 20070221

REACTIONS (3)
  - BACK INJURY [None]
  - CHEST PAIN [None]
  - TYPE 2 DIABETES MELLITUS [None]
